FAERS Safety Report 12319505 (Version 1)
Quarter: 2016Q2

REPORT INFORMATION
  Report Type: Spontaneous
  Country: US (occurrence: US)
  Receive Date: 20160429
  Receipt Date: 20160429
  Transmission Date: 20160815
  Serious: Yes (Other)
  Sender: FDA-Public Use
  Company Number: US-ROCHE-1601413

PATIENT
  Sex: Male
  Weight: 76.73 kg

DRUGS (1)
  1. ESBRIET [Suspect]
     Active Substance: PIRFENIDONE
     Indication: IDIOPATHIC PULMONARY FIBROSIS
     Dosage: 2403MG  TOTAL DAILY
     Route: 048
     Dates: start: 20150211

REACTIONS (4)
  - Respiratory rate decreased [Unknown]
  - Photophobia [Unknown]
  - Gastric disorder [Unknown]
  - Weight decreased [Unknown]
